FAERS Safety Report 10047367 (Version 3)
Quarter: 2014Q2

REPORT INFORMATION
  Report Type: Spontaneous
  Country: FR (occurrence: FR)
  Receive Date: 20140331
  Receipt Date: 20140428
  Transmission Date: 20141212
  Serious: Yes (Other)
  Sender: FDA-Public Use
  Company Number: FR-JNJFOC-20140315563

PATIENT
  Age: 75 Year
  Sex: Female

DRUGS (4)
  1. XARELTO [Suspect]
     Indication: CEREBROVASCULAR ACCIDENT PROPHYLAXIS
     Route: 048
     Dates: start: 20131204, end: 20140210
  2. XARELTO [Suspect]
     Indication: ATRIAL FIBRILLATION
     Route: 048
     Dates: start: 20131204, end: 20140210
  3. ISOPTINE [Concomitant]
     Route: 065
  4. COKENZEN [Concomitant]
     Route: 065

REACTIONS (1)
  - Drug-induced liver injury [Unknown]
